FAERS Safety Report 25684320 (Version 1)
Quarter: 2025Q3

REPORT INFORMATION
  Report Type: Spontaneous
  Country: JP (occurrence: JP)
  Receive Date: 20250815
  Receipt Date: 20250815
  Transmission Date: 20251020
  Serious: Yes (Other)
  Sender: RECORDATI
  Company Number: JP-ORPHANEU-2025003483

PATIENT
  Sex: Female

DRUGS (4)
  1. ENJAYMO [Suspect]
     Active Substance: SUTIMLIMAB-JOME
     Indication: Cold type haemolytic anaemia
     Route: 041
     Dates: start: 20250311
  2. ENJAYMO [Suspect]
     Active Substance: SUTIMLIMAB-JOME
     Route: 041
     Dates: start: 20250318
  3. FEBUXOSTAT [Concomitant]
     Active Substance: FEBUXOSTAT
     Indication: Hyperuricaemia
     Dates: end: 20250316
  4. FEBUXOSTAT [Concomitant]
     Active Substance: FEBUXOSTAT
     Dates: start: 20250317

REACTIONS (9)
  - Drug-induced liver injury [Unknown]
  - Hepatic fibrosis [Unknown]
  - Renal impairment [Unknown]
  - Scintillating scotoma [Unknown]
  - Blood uric acid increased [Unknown]
  - White blood cell count decreased [Unknown]
  - Hepatic function abnormal [Unknown]
  - Hyponatraemia [Unknown]
  - Headache [Unknown]

NARRATIVE: CASE EVENT DATE: 20250311
